FAERS Safety Report 25563036 (Version 2)
Quarter: 2025Q3

REPORT INFORMATION
  Report Type: Spontaneous
  Country: US (occurrence: US)
  Receive Date: 20250716
  Receipt Date: 20250716
  Transmission Date: 20251020
  Serious: No
  Sender: NOVO NORDISK
  Company Number: US-NOVOPROD-1379303

PATIENT
  Sex: Female

DRUGS (2)
  1. OZEMPIC [Suspect]
     Active Substance: SEMAGLUTIDE
     Indication: Product used for unknown indication
     Dates: start: 202408
  2. OZEMPIC [Suspect]
     Active Substance: SEMAGLUTIDE
     Indication: Product used for unknown indication
     Dosage: 1 MG, QW

REACTIONS (9)
  - Myalgia [Unknown]
  - Muscular weakness [Unknown]
  - Blood glucose decreased [Unknown]
  - Abdominal distension [Unknown]
  - Headache [Unknown]
  - Nausea [Unknown]
  - Blood glucose increased [Unknown]
  - Dizziness [Unknown]
  - Fatigue [Unknown]
